FAERS Safety Report 12465017 (Version 1)
Quarter: 2016Q2

REPORT INFORMATION
  Report Type: Not Available
  Country: US (occurrence: US)
  Receive Date: 20160614
  Receipt Date: 20160614
  Transmission Date: 20160815
  Serious: Yes (Death)
  Sender: FDA-Public Use
  Company Number: US-ANIPHARMA-2016-US-003930

PATIENT
  Age: 50 Year
  Sex: Female

DRUGS (3)
  1. METHACARBAMOL [Suspect]
     Active Substance: METHOCARBAMOL
     Dosage: UNKNOWN
     Route: 065
  2. OXYCODONE (NON-SPECIFIC) [Suspect]
     Active Substance: OXYCODONE
     Dosage: UNKNOWN
     Route: 065
  3. TRAZODONE [Suspect]
     Active Substance: TRAZODONE HYDROCHLORIDE
     Dosage: UNKNOWN
     Route: 065

REACTIONS (2)
  - Basal ganglia infarction [Fatal]
  - Toxicity to various agents [Fatal]
